FAERS Safety Report 23226301 (Version 4)
Quarter: 2023Q4

REPORT INFORMATION
  Report Type: Spontaneous
  Country: US (occurrence: US)
  Receive Date: 20231124
  Receipt Date: 20231229
  Transmission Date: 20240110
  Serious: Yes (Other)
  Sender: FDA-Public Use
  Company Number: None

PATIENT
  Age: 26 Day
  Sex: Female
  Weight: 0.98 kg

DRUGS (6)
  1. FOSPHENYTOIN SODIUM [Suspect]
     Active Substance: FOSPHENYTOIN SODIUM
     Indication: Neonatal seizure
     Dosage: UNK UNK, BID (6 MG/KG DIVIDED TWICE DAILY)
     Route: 042
  2. LEVETIRACETAM [Suspect]
     Active Substance: LEVETIRACETAM
     Indication: Neonatal seizure
     Dosage: 100 MILLIGRAM/KILOGRAM, BID, 100 MILLIGRAM PER KILOGRAM PER DAY TWICE A DAY)
     Route: 042
  3. LEVETIRACETAM [Suspect]
     Active Substance: LEVETIRACETAM
     Dosage: 60 MILLIGRAM/KILOGRAM, BID, 60 MG/KG DIVIDED TWICE DAILY INSTEAD OF 100 MG/KG DIVIDED TWICE DAILY)
     Route: 042
  4. PHENOBARBITAL [Suspect]
     Active Substance: PHENOBARBITAL
     Indication: Neonatal seizure
     Dosage: 6 MILLIGRAM PER KILOGRAM PER DAY, BID
     Route: 042
  5. PHENOBARBITAL [Suspect]
     Active Substance: PHENOBARBITAL
     Dosage: 2 MILLIGRAM/KILOGRAM, BID, 2 MG/KG TWICE DAILY)
     Route: 042
  6. LACOSAMIDE [Concomitant]
     Active Substance: LACOSAMIDE
     Indication: Seizure
     Dosage: 2 MILLIGRAM/KILOGRAM,  LOADING DOSE (2 MG/KG/DOSE)
     Route: 042

REACTIONS (2)
  - Electrolyte imbalance [Unknown]
  - Intraventricular haemorrhage neonatal [Unknown]
